FAERS Safety Report 7490187-9 (Version None)
Quarter: 2011Q2

REPORT INFORMATION
  Report Type: 
  Country: None (occurrence: None)
  Receive Date: 20110517
  Receipt Date: 20110517
  Transmission Date: 20111010
  Serious: Yes (Hospitalization)
  Sender: FDA-Public Use
  Company Number: None

PATIENT
  Sex: Female
  Weight: 89.1 kg

DRUGS (1)
  1. TEMOZOLOMIDE [Suspect]
     Dosage: 1740 MG
     Dates: end: 20110430

REACTIONS (10)
  - SEPSIS [None]
  - URINARY TRACT INFECTION [None]
  - MALAISE [None]
  - RENAL FAILURE ACUTE [None]
  - LETHARGY [None]
  - HYPERPHOSPHATAEMIA [None]
  - FATIGUE [None]
  - HYPOTENSION [None]
  - DEHYDRATION [None]
  - DIVERTICULITIS [None]
